FAERS Safety Report 5753557-2 (Version None)
Quarter: 2008Q2

REPORT INFORMATION
  Report Type: 
  Country: None (occurrence: None)
  Receive Date: 20080530
  Receipt Date: 20080528
  Transmission Date: 20081010
  Serious: Yes (Other)
  Sender: FDA-Public Use
  Company Number: FR-RB-001608-08

PATIENT
  Sex: Male

DRUGS (1)
  1. SUBUTEX [Suspect]
     Indication: DRUG THERAPY
     Route: 065

REACTIONS (2)
  - INJECTION SITE ABSCESS [None]
  - SUICIDAL IDEATION [None]
